FAERS Safety Report 23109582 (Version 1)
Quarter: 2023Q4

REPORT INFORMATION
  Report Type: Spontaneous
  Country: DE (occurrence: DE)
  Receive Date: 20231026
  Receipt Date: 20231026
  Transmission Date: 20240110
  Serious: Yes (Congenital Anomaly)
  Sender: FDA-Public Use
  Company Number: DE-EMBRYOTOX-202207051

PATIENT
  Age: 1 Day
  Sex: Female
  Weight: 3.89 kg

DRUGS (11)
  1. CETIRIZINE [Suspect]
     Active Substance: CETIRIZINE HYDROCHLORIDE
     Indication: Urticaria chronic
     Dosage: 15 [MG/D ]/ 15 MG/D; REDUCED TO 10 MG/D IN EARLY PREGNANCY
     Dates: start: 20220510, end: 20230219
  2. DOXYLAMINE SUCCINATE\PYRIDOXINE HYDROCHLORIDE [Suspect]
     Active Substance: DOXYLAMINE SUCCINATE\PYRIDOXINE HYDROCHLORIDE
     Indication: Morning sickness
     Dosage: 20 MILLIGRAM DAILY; 20 [MG/D ] / 20 [MG/D ]/ 2X 10MG/D 2 SEPARATED DOSES
     Dates: start: 20220619, end: 20220702
  3. MECLIZINE HYDROCHLORIDE [Suspect]
     Active Substance: MECLIZINE HYDROCHLORIDE
     Indication: Morning sickness
     Dosage: 50 MILLIGRAM DAILY; 50 [MG/D ]/ 2X 25 MG DAILY 2 SEPARATED DOSES
  4. OCTENIDINE\PHENOXYETHANOL [Concomitant]
     Active Substance: OCTENIDINE\PHENOXYETHANOL
     Indication: Skin lesion
  5. SILOMAT DMP [Concomitant]
     Indication: Cough
  6. LEVOTHYROXINE SODIUM [Concomitant]
     Active Substance: LEVOTHYROXINE SODIUM
     Indication: Hypothyroidism
     Dosage: 12.5 MICROGRAM DAILY;
     Dates: start: 20220510, end: 20230219
  7. IPALAT-PASTILLEN [Concomitant]
     Indication: Cough
  8. VITAMIN B12 DEPOT [Concomitant]
     Indication: Vitamin B12 deficiency
     Dosage: 1000 MICROGRAM DAILY; 1000 [MCG/D ]/ ONE SINGLE DOSE, 1000 MCG
     Dates: start: 20220616, end: 20220616
  9. BEPANTHEN [Concomitant]
     Indication: Skin lesion
  10. ETHACRIDINE LACTATE [Concomitant]
     Active Substance: ETHACRIDINE LACTATE
     Indication: Skin lesion
     Dates: start: 20220510, end: 20220930
  11. BRAUNOVIDON [Concomitant]
     Indication: Skin lesion
     Dates: start: 20220510, end: 20220930

REACTIONS (3)
  - Ventricular septal defect [Not Recovered/Not Resolved]
  - Macrocephaly [Unknown]
  - Foetal exposure during pregnancy [Unknown]

NARRATIVE: CASE EVENT DATE: 20230201
